FAERS Safety Report 5503761-3 (Version None)
Quarter: 2007Q4

REPORT INFORMATION
  Report Type: 
  Country: None (occurrence: None)
  Receive Date: 20071030
  Receipt Date: 20071030
  Transmission Date: 20080405
  Serious: Yes (Death)
  Sender: FDA-Public Use
  Company Number: None

PATIENT
  Age: 46 Year
  Sex: Female
  Weight: 65.9 kg

DRUGS (2)
  1. FRAGMIN [Suspect]
     Indication: DEEP VEIN THROMBOSIS
     Dosage: 12,500 IU  DAILY  SQ
     Route: 058
     Dates: start: 20071017, end: 20071028
  2. FRAGMIN [Suspect]

REACTIONS (6)
  - COAGULATION FACTOR X LEVEL DECREASED [None]
  - CREATININE RENAL CLEARANCE DECREASED [None]
  - DIZZINESS [None]
  - HAEMORRHAGE INTRACRANIAL [None]
  - NAUSEA [None]
  - PLATELET COUNT INCREASED [None]
